FAERS Safety Report 7231459-2 (Version None)
Quarter: 2011Q1

REPORT INFORMATION
  Report Type: 
  Country: None (occurrence: None)
  Receive Date: 20110118
  Receipt Date: 20110111
  Transmission Date: 20110831
  Serious: Yes (Hospitalization)
  Sender: FDA-Public Use
  Company Number: US-US-EMD SERONO, INC.-230885J09USA

PATIENT
  Sex: Female
  Weight: 54 kg

DRUGS (8)
  1. REBIF [Suspect]
     Indication: MULTIPLE SCLEROSIS
     Route: 058
     Dates: start: 20080604
  2. SIMVASTATIN [Concomitant]
     Indication: BLOOD CHOLESTEROL ABNORMAL
  3. PRILOSEC [Concomitant]
     Indication: GASTROOESOPHAGEAL REFLUX DISEASE
  4. UNSPECIFIED MEDICATIONS [Concomitant]
  5. NIACIN [Concomitant]
  6. LISINOPRIL [Concomitant]
  7. REGLAN [Concomitant]
  8. SORBIDE [Concomitant]

REACTIONS (7)
  - INJECTION SITE HAEMATOMA [None]
  - UPPER LIMB FRACTURE [None]
  - CORONARY ARTERY THROMBOSIS [None]
  - CORONARY ARTERY OCCLUSION [None]
  - JOINT SPRAIN [None]
  - FALL [None]
  - MYOCARDIAL INFARCTION [None]
